FAERS Safety Report 7711548-6 (Version None)
Quarter: 2011Q3

REPORT INFORMATION
  Report Type: 
  Country: None (occurrence: None)
  Receive Date: 20110826
  Receipt Date: 20110817
  Transmission Date: 20111222
  Serious: Yes (Hospitalization)
  Sender: FDA-Public Use
  Company Number: FR-JNJFOC-20110808446

PATIENT
  Age: 11 Year
  Sex: Female

DRUGS (1)
  1. HALDOL [Suspect]
     Indication: ABNORMAL BEHAVIOUR
     Route: 048

REACTIONS (5)
  - DYSPNOEA [None]
  - TACHYCARDIA [None]
  - VISUAL IMPAIRMENT [None]
  - DYSKINESIA [None]
  - ANXIETY [None]
